FAERS Safety Report 10499589 (Version 1)
Quarter: 2014Q4

REPORT INFORMATION
  Report Type: Spontaneous
  Country: US (occurrence: US)
  Receive Date: 20141006
  Receipt Date: 20141006
  Transmission Date: 20150528
  Serious: Yes (Hospitalization)
  Sender: FDA-Public Use
  Company Number: US-ACTELION-A-US2014-105957

PATIENT
  Age: 56 Year
  Sex: Male

DRUGS (9)
  1. INSPRA [Concomitant]
     Active Substance: EPLERENONE
  2. RIFAXIMIN [Concomitant]
     Active Substance: RIFAXIMIN
  3. VELETRI [Suspect]
     Active Substance: EPOPROSTENOL
     Indication: COR PULMONALE CHRONIC
     Dosage: UNK
     Route: 042
     Dates: start: 20140722
  4. FUROSEMIDE. [Concomitant]
     Active Substance: FUROSEMIDE
  5. EPLERENONE. [Concomitant]
     Active Substance: EPLERENONE
  6. MORPHINE [Concomitant]
     Active Substance: MORPHINE
  7. NADOLOL. [Concomitant]
     Active Substance: NADOLOL
  8. ZYRTEC [Concomitant]
     Active Substance: CETIRIZINE HYDROCHLORIDE
  9. OMEPRAZOLE. [Concomitant]
     Active Substance: OMEPRAZOLE

REACTIONS (1)
  - Pneumonia [Recovered/Resolved]

NARRATIVE: CASE EVENT DATE: 20140915
